FAERS Safety Report 8305522-9 (Version None)
Quarter: 2012Q2

REPORT INFORMATION
  Report Type: 
  Country: None (occurrence: None)
  Receive Date: 20120423
  Receipt Date: 20120411
  Transmission Date: 20120825
  Serious: Yes (Death, Hospitalization)
  Sender: FDA-Public Use
  Company Number: JP-GLAXOSMITHKLINE-B0795407A

PATIENT
  Sex: Male

DRUGS (5)
  1. VALPROIC ACID [Concomitant]
  2. LAMICTAL [Suspect]
     Indication: PRODUCT USED FOR UNKNOWN INDICATION
     Dosage: 25MG PER DAY
     Route: 048
  3. AMOXAPINE [Concomitant]
  4. VALPROATE SODIUM [Suspect]
     Indication: PRODUCT USED FOR UNKNOWN INDICATION
  5. LEXAPRO [Concomitant]

REACTIONS (3)
  - DEATH [None]
  - STEVENS-JOHNSON SYNDROME [None]
  - SKIN DISORDER [None]
